FAERS Safety Report 8667741 (Version 2)
Quarter: 2012Q4

REPORT INFORMATION
  Report Type: 
  Country: GB (occurrence: GB)
  Receive Date: 20120717
  Receipt Date: 20121017
  Transmission Date: 20130627
  Serious: Yes (Disabling, Other)
  Sender: FDA-Public Use
  Company Number: GB-B.I. PHARMACEUTICALS,INC./RIDGEFIELD-2012-UK-00901UK

PATIENT
  Age: 71 Year
  Sex: Male
  Weight: 88.91 kg

DRUGS (6)
  1. PRADAXA [Suspect]
     Indication: ATRIAL FIBRILLATION
     Dosage: 300 mg
     Dates: start: 20120516
  2. ASPIRIN [Concomitant]
     Dates: start: 20120306
  3. ATENOLOL [Concomitant]
     Dates: start: 20120306
  4. DABIGATRAN ETEXILATE [Concomitant]
     Dates: start: 20120516
  5. LOSARTAN [Concomitant]
     Dates: start: 20120306
  6. SIMVASTATIN [Concomitant]
     Dates: start: 20120306

REACTIONS (3)
  - Arthralgia [Recovered/Resolved]
  - Arthritis [Recovered/Resolved]
  - Joint swelling [Recovered/Resolved]
